FAERS Safety Report 9806085 (Version 4)
Quarter: 2014Q2

REPORT INFORMATION
  Report Type: Spontaneous
  Country: FR (occurrence: FR)
  Receive Date: 20140109
  Receipt Date: 20140415
  Transmission Date: 20141212
  Serious: Yes (Congenital Anomaly, Other)
  Sender: FDA-Public Use
  Company Number: FR-GILEAD-2014-0091464

PATIENT
  Sex: 0

DRUGS (9)
  1. ATRIPLA [Suspect]
     Indication: HIV INFECTION
     Dosage: UNK
     Route: 064
     Dates: start: 201309
  2. ATRIPLA [Suspect]
     Dosage: UNK
     Route: 064
  3. TRUVADA [Suspect]
     Indication: HIV INFECTION
     Route: 064
  4. REYATAZ [Concomitant]
     Indication: HIV INFECTION
     Route: 064
  5. NORVIR [Concomitant]
     Indication: HIV INFECTION
  6. KIVEXA [Concomitant]
     Indication: HIV INFECTION
     Route: 064
  7. KALETRA [Concomitant]
     Indication: HIV INFECTION
     Route: 064
  8. ZIAGEN [Concomitant]
     Indication: HIV INFECTION
  9. EPIVIR [Concomitant]
     Indication: HIV INFECTION

REACTIONS (2)
  - Congenital cystic lung [Recovered/Resolved with Sequelae]
  - Pulmonary sequestration [Recovered/Resolved with Sequelae]
